FAERS Safety Report 19646654 (Version 3)
Quarter: 2023Q2

REPORT INFORMATION
  Report Type: Spontaneous
  Country: US (occurrence: US)
  Receive Date: 20210802
  Receipt Date: 20230630
  Transmission Date: 20230722
  Serious: No
  Sender: FDA-Public Use
  Company Number: US-GW PHARMA-202107USGW03706

PATIENT

DRUGS (5)
  1. EPIDIOLEX [Suspect]
     Active Substance: CANNABIDIOL
     Indication: Epilepsy
     Dosage: 500 MILLIGRAM, BID (16.2MG/KG DAILY)
     Route: 048
     Dates: start: 202010
  2. EPIDIOLEX [Suspect]
     Active Substance: CANNABIDIOL
     Indication: Tuberous sclerosis complex
     Dosage: 400 MILLIGRAM (DOSE WAS WITHIN RANGE FOR WEIGHT)
     Route: 048
  3. EPIDIOLEX [Suspect]
     Active Substance: CANNABIDIOL
     Dosage: 500 MILLIGRAM, BID (16.2MG/KG DAILY)
     Route: 048
     Dates: start: 202010
  4. EPIDIOLEX [Suspect]
     Active Substance: CANNABIDIOL
     Dosage: 400 MILLIGRAM (DOSE WAS WITHIN RANGE FOR WEIGHT)
     Route: 048
  5. EPIDIOLEX [Suspect]
     Active Substance: CANNABIDIOL
     Dosage: 4 MILLILITER
     Route: 048
     Dates: start: 20220510

REACTIONS (3)
  - Weight abnormal [Unknown]
  - Weight increased [Unknown]
  - Weight decreased [Unknown]
